FAERS Safety Report 14472646 (Version 2)
Quarter: 2018Q1

REPORT INFORMATION
  Report Type: Report from Study
  Country: CN (occurrence: CN)
  Receive Date: 20180201
  Receipt Date: 20180205
  Transmission Date: 20180509
  Serious: Yes (Hospitalization)
  Sender: FDA-Public Use
  Company Number: CN-ROCHE-2058500

PATIENT
  Age: 76 Year
  Sex: Male
  Weight: 60 kg

DRUGS (1)
  1. AVASTIN [Suspect]
     Active Substance: BEVACIZUMAB
     Indication: RECTAL CANCER
     Dosage: 400/500 MG
     Route: 041
     Dates: start: 20160715, end: 20180102

REACTIONS (2)
  - Intestinal fistula [Not Recovered/Not Resolved]
  - Tumour invasion [Not Recovered/Not Resolved]
